FAERS Safety Report 20911791 (Version 1)
Quarter: 2022Q2

REPORT INFORMATION
  Report Type: Spontaneous
  Country: CN (occurrence: CN)
  Receive Date: 20220603
  Receipt Date: 20220603
  Transmission Date: 20220720
  Serious: Yes (Life-Threatening, Hospitalization, Other)
  Sender: FDA-Public Use
  Company Number: CN-PFIZER INC-202200789298

PATIENT
  Age: 29 Year
  Sex: Female

DRUGS (3)
  1. CYTARABINE [Suspect]
     Active Substance: CYTARABINE
     Indication: Acute myeloid leukaemia
     Dosage: 3.5 G, 2X/DAY
     Route: 041
     Dates: start: 20220508, end: 20220508
  2. CYTARABINE [Suspect]
     Active Substance: CYTARABINE
     Dosage: 3.5 G, 2X/DAY
     Route: 041
     Dates: start: 20220510, end: 20220510
  3. CYTARABINE [Suspect]
     Active Substance: CYTARABINE
     Dosage: 3.5 G, 2X/DAY
     Route: 041
     Dates: start: 20220512, end: 20220512

REACTIONS (10)
  - Neutrophil count decreased [Recovering/Resolving]
  - White blood cell count decreased [Recovering/Resolving]
  - Platelet count decreased [Recovering/Resolving]
  - Haemoglobin decreased [Recovering/Resolving]
  - Asthenia [Recovering/Resolving]
  - Vaginal haemorrhage [Recovering/Resolving]
  - Myelosuppression [Unknown]
  - Pollakiuria [Unknown]
  - Micturition urgency [Unknown]
  - Dysuria [Unknown]

NARRATIVE: CASE EVENT DATE: 20220519
